FAERS Safety Report 9096552 (Version 2)
Quarter: 2013Q2

REPORT INFORMATION
  Report Type: Spontaneous
  Country: US (occurrence: None)
  Receive Date: 20130124
  Receipt Date: 20130507
  Transmission Date: 20140414
  Serious: Yes (Hospitalization, Other)
  Sender: FDA-Public Use
  Company Number: ADR-2013-00092

PATIENT
  Sex: Female

DRUGS (7)
  1. BACLOFEN INTRATHECAL [Suspect]
     Indication: PAIN
     Route: 037
     Dates: start: 20130109
  2. MORPHINE INTRATHECAL [Concomitant]
  3. OXYCONTIN ORAL [Concomitant]
  4. PERCOCET ORAL [Concomitant]
  5. VALIUM [Concomitant]
  6. LIQUID MORPHINE [Concomitant]
  7. TYLENOL [Concomitant]

REACTIONS (8)
  - Fall [None]
  - Incoherent [None]
  - Muscle spasms [None]
  - Inadequate analgesia [None]
  - Pneumonia escherichia [None]
  - Crying [None]
  - Overdose [None]
  - Somnolence [None]
